FAERS Safety Report 18092877 (Version 5)
Quarter: 2020Q4

REPORT INFORMATION
  Report Type: Spontaneous
  Country: SE (occurrence: SE)
  Receive Date: 20200730
  Receipt Date: 20201228
  Transmission Date: 20210113
  Serious: Yes (Other)
  Sender: FDA-Public Use
  Company Number: SE-REGENERON PHARMACEUTICALS, INC.-2020-53112

PATIENT

DRUGS (3)
  1. EYLEA [Suspect]
     Active Substance: AFLIBERCEPT
     Dosage: 1 DF, ONCE
     Route: 031
     Dates: start: 20201218, end: 20201218
  2. EYLEA [Suspect]
     Active Substance: AFLIBERCEPT
     Dosage: (OS)
     Dates: start: 20201007, end: 20201007
  3. EYLEA [Suspect]
     Active Substance: AFLIBERCEPT
     Indication: AGE-RELATED MACULAR DEGENERATION
     Dosage: 1 DF, ONCE; BOTH EYES
     Dates: start: 20200714, end: 20200714

REACTIONS (8)
  - Injection site pain [Recovered/Resolved]
  - Intraocular pressure increased [Recovered/Resolved]
  - Device use issue [Recovered/Resolved]
  - Blindness transient [Recovered/Resolved]
  - Intraocular pressure increased [Unknown]
  - Intraocular pressure increased [Recovered/Resolved]
  - Blindness transient [Recovered/Resolved]
  - Cataract operation [Unknown]

NARRATIVE: CASE EVENT DATE: 202007
